FAERS Safety Report 13391347 (Version 2)
Quarter: 2017Q2

REPORT INFORMATION
  Report Type: Spontaneous
  Country: GB (occurrence: GB)
  Receive Date: 20170331
  Receipt Date: 20170417
  Transmission Date: 20170830
  Serious: Yes (Hospitalization)
  Sender: FDA-Public Use
  Company Number: GB-PFIZER INC-2017133603

PATIENT
  Age: 50 Year
  Sex: Male

DRUGS (5)
  1. SERTRALINE HCL [Suspect]
     Active Substance: SERTRALINE HYDROCHLORIDE
  2. VITAMIN B [Concomitant]
     Active Substance: VITAMIN B
  3. OMEPRAZOLE. [Suspect]
     Active Substance: OMEPRAZOLE
  4. PROPRANOLOL [Concomitant]
     Active Substance: PROPRANOLOL HYDROCHLORIDE
  5. THIAMINE. [Concomitant]
     Active Substance: THIAMINE

REACTIONS (1)
  - Hyponatraemia [Unknown]
